FAERS Safety Report 5272305-6 (Version None)
Quarter: 2007Q1

REPORT INFORMATION
  Report Type: 
  Country: None (occurrence: None)
  Receive Date: 20070322
  Receipt Date: 20070315
  Transmission Date: 20070707
  Serious: Yes (Other)
  Sender: FDA-Public Use
  Company Number: US-JNJFOC-20070304246

PATIENT
  Sex: Female
  Weight: 76.2 kg

DRUGS (3)
  1. ORTHO EVRA [Suspect]
     Indication: CONTRACEPTION
     Dates: end: 20040101
  2. ZOLOFT [Concomitant]
     Indication: ANXIETY
  3. IBUPROFEN [Concomitant]
     Indication: PAIN

REACTIONS (1)
  - RETROPLACENTAL HAEMATOMA [None]
